FAERS Safety Report 16233962 (Version 1)
Quarter: 2019Q2

REPORT INFORMATION
  Report Type: Spontaneous
  Country: US (occurrence: US)
  Receive Date: 20190423
  Receipt Date: 20190423
  Transmission Date: 20190711
  Serious: Yes (Hospitalization, Disabling)
  Sender: FDA-Public Use
  Company Number: None

PATIENT
  Age: 45 Year
  Sex: Female

DRUGS (5)
  1. INSULIN [Concomitant]
     Active Substance: INSULIN NOS
  2. TOPIRAMATE. [Concomitant]
     Active Substance: TOPIRAMATE
  3. IC MELOXICAM 15 MG / SUBSTITUTE FOR MOBIC [Suspect]
     Active Substance: MELOXICAM
     Indication: FIBROMYALGIA
     Dosage: ?          QUANTITY:30 TABLET(S);?
     Route: 048
     Dates: end: 20190415
  4. FLEXERIL [Concomitant]
     Active Substance: CYCLOBENZAPRINE HYDROCHLORIDE
  5. MELATONIN [Concomitant]
     Active Substance: MELATONIN

REACTIONS (2)
  - Acute kidney injury [None]
  - Renal tubular necrosis [None]

NARRATIVE: CASE EVENT DATE: 20190416
